FAERS Safety Report 7197676-5 (Version None)
Quarter: 2010Q4

REPORT INFORMATION
  Report Type: 
  Country: None (occurrence: None)
  Receive Date: 20101213
  Receipt Date: 20100915
  Transmission Date: 20110411
  Serious: Yes (Other)
  Sender: FDA-Public Use
  Company Number: 20100451

PATIENT
  Sex: Male

DRUGS (2)
  1. CYANOCOBALAMIN [Suspect]
     Indication: VITAMIN B12 DEFICIENCY
     Dosage: 1000 MCG INTRAMUSCULAR
     Route: 030
  2. VITAMIN B-12 [Concomitant]

REACTIONS (5)
  - BLOOD CREATININE INCREASED [None]
  - BURNING SENSATION [None]
  - LYMPHADENOPATHY [None]
  - MYALGIA [None]
  - OROPHARYNGEAL PAIN [None]
